FAERS Safety Report 4591904-8 (Version None)
Quarter: 2005Q1

REPORT INFORMATION
  Report Type: 
  Country: None (occurrence: None)
  Receive Date: 20050222
  Receipt Date: 20050215
  Transmission Date: 20050727
  Serious: Yes (Hospitalization)
  Sender: FDA-Public Use
  Company Number: TPA2005A00174

PATIENT
  Age: 62 Year
  Sex: Female
  Weight: 88.905 kg

DRUGS (4)
  1. ACTOS [Suspect]
     Indication: DIABETES MELLITUS NON-INSULIN-DEPENDENT
     Dosage: 45 MG, 1 IN 1 D, PER ORAL
     Route: 048
     Dates: start: 20020215
  2. GLUCOVANCE [Suspect]
     Indication: DIABETES MELLITUS
     Dosage: 5/500 MG, 4 IN 1 D, PER ORAL
     Route: 048
     Dates: start: 20000101
  3. LISINOPRIL (LISINOPRIL)  (10 MILIGRAM) [Concomitant]
  4. EFFEXOR XR (VENLAFAXINE HYDROCHLORIDE) (150 MILLIGRAM) [Concomitant]

REACTIONS (3)
  - BLOOD GLUCOSE DECREASED [None]
  - BLOOD POTASSIUM DECREASED [None]
  - BLOOD TRIGLYCERIDES INCREASED [None]
